FAERS Safety Report 6974444-8 (Version None)
Quarter: 2010Q3

REPORT INFORMATION
  Report Type: 
  Country: None (occurrence: None)
  Receive Date: 20100909
  Receipt Date: 20080701
  Transmission Date: 20110219
  Serious: No
  Sender: FDA-Public Use
  Company Number: US-WYE-H03668708

PATIENT

DRUGS (1)
  1. PROTONIX [Suspect]
     Dosage: UNSPECIFIED
     Route: 065

REACTIONS (1)
  - CLOSTRIDIAL INFECTION [None]
